FAERS Safety Report 17571399 (Version 1)
Quarter: 2020Q1

REPORT INFORMATION
  Report Type: Spontaneous
  Country: US (occurrence: US)
  Receive Date: 20200316
  Receipt Date: 20200316
  Transmission Date: 20200409
  Serious: Yes (Death, Hospitalization)
  Sender: FDA-Public Use
  Company Number: None

PATIENT
  Age: 67 Year
  Sex: Male
  Weight: 95 kg

DRUGS (2)
  1. FLUOROURACIL (FLUOROURACIL (PF) 50MG/ML INJ) [Suspect]
     Active Substance: FLUOROURACIL
     Indication: COLON CANCER METASTATIC
     Route: 042
     Dates: start: 20191015, end: 20191210
  2. CETUXIMAB (CETUXIMAB 2MG/ML INJ, 100ML) [Suspect]
     Active Substance: CETUXIMAB
     Indication: COLON CANCER METASTATIC
     Route: 042
     Dates: start: 20191015, end: 20191210

REACTIONS (9)
  - Neutropenia [None]
  - Thrombocytopenia [None]
  - Anaemia [None]
  - Hypotension [None]
  - Acute kidney injury [None]
  - Small intestinal obstruction [None]
  - Leukopenia [None]
  - Diarrhoea [None]
  - Vomiting [None]

NARRATIVE: CASE EVENT DATE: 20191217
